FAERS Safety Report 9242909 (Version 1)
Quarter: 2013Q2

REPORT INFORMATION
  Report Type: Spontaneous
  Country: IT (occurrence: IT)
  Receive Date: 20130419
  Receipt Date: 20130419
  Transmission Date: 20140414
  Serious: Yes (Other)
  Sender: FDA-Public Use
  Company Number: IT-TEVA-397388ISR

PATIENT
  Age: 40 Year
  Sex: Male

DRUGS (1)
  1. COPAXONE [Suspect]
     Indication: MULTIPLE SCLEROSIS
     Route: 058

REACTIONS (6)
  - Hypersensitivity [Unknown]
  - Erythema [Unknown]
  - Urticaria [Unknown]
  - Chest discomfort [Unknown]
  - Respiratory failure [Unknown]
  - Tachycardia [Unknown]
